FAERS Safety Report 7595843-X (Version None)
Quarter: 2011Q3

REPORT INFORMATION
  Report Type: 
  Country: None (occurrence: None)
  Receive Date: 20110707
  Receipt Date: 20110705
  Transmission Date: 20111222
  Serious: No
  Sender: FDA-Public Use
  Company Number: US-PFIZER INC-2011150321

PATIENT
  Sex: Female
  Weight: 63.5 kg

DRUGS (1)
  1. DILANTIN [Suspect]
     Indication: CONVULSION
     Dosage: UNK
     Dates: start: 19980101

REACTIONS (2)
  - DENTAL CARIES [None]
  - GINGIVAL HYPERPLASIA [None]
